FAERS Safety Report 21126816 (Version 2)
Quarter: 2022Q3

REPORT INFORMATION
  Report Type: Spontaneous
  Country: ID (occurrence: ID)
  Receive Date: 20220725
  Receipt Date: 20220811
  Transmission Date: 20221027
  Serious: Yes (Hospitalization)
  Sender: FDA-Public Use
  Company Number: ID-VER-202200003

PATIENT
  Sex: Female

DRUGS (1)
  1. TRIPTORELIN PAMOATE [Suspect]
     Active Substance: TRIPTORELIN PAMOATE
     Indication: Endometriosis
     Route: 030
     Dates: start: 20220705

REACTIONS (3)
  - Asthenia [Recovered/Resolved]
  - Dysmenorrhoea [Recovered/Resolved]
  - Genital haemorrhage [Recovered/Resolved]
